FAERS Safety Report 24228709 (Version 5)
Quarter: 2025Q4

REPORT INFORMATION
  Report Type: Report from Study
  Country: US (occurrence: US)
  Receive Date: 20240820
  Receipt Date: 20251217
  Transmission Date: 20260117
  Serious: No
  Sender: PFIZER
  Company Number: US-PFIZER INC-202400239530

PATIENT
  Age: 63 Year
  Sex: Female

DRUGS (3)
  1. BRAFTOVI [Suspect]
     Active Substance: ENCORAFENIB
     Indication: Neoplasm malignant
     Dosage: 300 MG, DAILY (TAKE 4 CAPSULES DAILY)
     Route: 048
  2. MEKTOVI [Suspect]
     Active Substance: BINIMETINIB
     Dosage: 30 MG, 2X/DAY (TAKE 2 TABLETS TWO TIMES DAY)
     Route: 048
  3. NEURONTIN [Concomitant]
     Active Substance: GABAPENTIN
     Dosage: TAKE 1 TABLET (800 MG TOTAL) BY MOUTH TWO (2) TIMES A DAY.
     Route: 048

REACTIONS (1)
  - Dysphagia [Unknown]
